FAERS Safety Report 23588335 (Version 1)
Quarter: 2024Q1

REPORT INFORMATION
  Report Type: Spontaneous
  Country: SI (occurrence: SI)
  Receive Date: 20240302
  Receipt Date: 20240302
  Transmission Date: 20240410
  Serious: Yes (Death)
  Sender: FDA-Public Use
  Company Number: SI-AMGEN-SVNSP2024043253

PATIENT
  Age: 57 Year
  Sex: Male

DRUGS (7)
  1. BEVACIZUMAB [Suspect]
     Active Substance: BEVACIZUMAB
     Indication: Hepatocellular carcinoma
     Dosage: 900 MILLIGRAM
     Route: 065
  2. ATEZOLIZUMAB [Suspect]
     Active Substance: ATEZOLIZUMAB
     Indication: Hepatocellular carcinoma
     Dosage: 1200 MILLIGRAM
     Route: 065
  3. Analgin [Concomitant]
     Dosage: 500 MILLIGRAM
     Route: 065
  4. MORPHINE [Concomitant]
     Active Substance: MORPHINE
     Dosage: UNK (DROPS PRN)
     Route: 065
  5. ESOMEPRAZOLE MAGNESIUM [Concomitant]
     Active Substance: ESOMEPRAZOLE\ESOMEPRAZOLE MAGNESIUM\ESOMEPRAZOLE MAGNESIUM DIHYDRATE
     Dosage: 40 MILLIGRAM
     Route: 065
  6. ALDACTONE [Concomitant]
     Active Substance: SPIRONOLACTONE
     Dosage: 50 MILLIGRAM
     Route: 065
  7. LASIX [Concomitant]
     Active Substance: FUROSEMIDE
     Dosage: 40 MILLIGRAM
     Route: 065

REACTIONS (2)
  - Oesophageal varices haemorrhage [Fatal]
  - Off label use [Unknown]

NARRATIVE: CASE EVENT DATE: 20221218
